FAERS Safety Report 5906064-8 (Version None)
Quarter: 2008Q4

REPORT INFORMATION
  Report Type: 
  Country: None (occurrence: None)
  Receive Date: 20081002
  Receipt Date: 20080923
  Transmission Date: 20090506
  Serious: Yes (Hospitalization, Other)
  Sender: FDA-Public Use
  Company Number: PHHY2008AU22260

PATIENT
  Sex: Female
  Weight: 137 kg

DRUGS (5)
  1. CLOZARIL [Suspect]
     Dosage: 400 MG DAY
     Route: 048
  2. CLOZARIL [Suspect]
     Dosage: 350 MG/DAY
     Route: 048
  3. CLOZARIL [Suspect]
     Dosage: 300 MG/DAY
     Route: 048
  4. CLOZARIL [Suspect]
     Dosage: 350 MG/DAY
     Route: 048
  5. WARFARIN SODIUM [Concomitant]
     Dosage: UNK

REACTIONS (5)
  - CHEST PAIN [None]
  - COGNITIVE DISORDER [None]
  - PAIN IN EXTREMITY [None]
  - PULMONARY EMBOLISM [None]
  - WEIGHT INCREASED [None]
